FAERS Safety Report 20478625 (Version 2)
Quarter: 2022Q1

REPORT INFORMATION
  Report Type: Spontaneous
  Country: CZ (occurrence: CZ)
  Receive Date: 20220216
  Receipt Date: 20220324
  Transmission Date: 20220423
  Serious: Yes (Other)
  Sender: FDA-Public Use
  Company Number: CZ-Zentiva-2022-ZT-000510

PATIENT
  Age: 38 Year
  Sex: Female

DRUGS (23)
  1. TRAMADOL [Suspect]
     Active Substance: TRAMADOL
     Indication: Pain
     Dosage: UNK
     Route: 065
  2. TRAMADOL [Suspect]
     Active Substance: TRAMADOL
     Indication: Breakthrough pain
  3. TRAMADOL [Suspect]
     Active Substance: TRAMADOL
     Indication: Coccydynia
  4. TRAMADOL [Suspect]
     Active Substance: TRAMADOL
     Indication: Sacral pain
  5. DIHYDROCODEINE BITARTRATE [Suspect]
     Active Substance: DIHYDROCODEINE BITARTRATE
     Indication: Pain
     Dosage: UNK
     Route: 065
  6. DIHYDROCODEINE BITARTRATE [Suspect]
     Active Substance: DIHYDROCODEINE BITARTRATE
     Indication: Breakthrough pain
  7. DIHYDROCODEINE BITARTRATE [Suspect]
     Active Substance: DIHYDROCODEINE BITARTRATE
     Indication: Coccydynia
  8. XELODA [Concomitant]
     Active Substance: CAPECITABINE
     Indication: Product used for unknown indication
     Dosage: UNK
     Route: 065
  9. PANADOL [Concomitant]
     Active Substance: ACETAMINOPHEN
     Indication: Sacral pain
     Dosage: UNK
     Route: 065
  10. PANADOL [Concomitant]
     Active Substance: ACETAMINOPHEN
     Indication: Breakthrough pain
  11. PANADOL [Concomitant]
     Active Substance: ACETAMINOPHEN
     Indication: Coccydynia
  12. PANADOL [Concomitant]
     Active Substance: ACETAMINOPHEN
     Indication: Pain
  13. GABAPENTIN [Concomitant]
     Active Substance: GABAPENTIN
     Indication: Breakthrough pain
     Dosage: 300 MILLIGRAM (100X 300 MG 3X 1 TBL PER PERSON)
     Route: 065
  14. Fenroo [Concomitant]
     Indication: Product used for unknown indication
     Dosage: UNK
     Route: 065
  15. DIHYDROCODEINE [Concomitant]
     Active Substance: DIHYDROCODEINE
     Indication: Sacral pain
     Dosage: UNK
     Route: 065
  16. DIHYDROCODEINE [Concomitant]
     Active Substance: DIHYDROCODEINE
     Indication: Pain
  17. DIHYDROCODEINE [Concomitant]
     Active Substance: DIHYDROCODEINE
     Indication: Breakthrough pain
  18. DIHYDROCODEINE [Concomitant]
     Active Substance: DIHYDROCODEINE
     Indication: Coccydynia
  19. FENTANYL [Concomitant]
     Active Substance: FENTANYL
     Indication: Breakthrough pain
     Dosage: 200 MCG
     Route: 002
  20. IBUPROFEN [Concomitant]
     Active Substance: IBUPROFEN
     Indication: Sacral pain
     Dosage: UNK
     Route: 065
  21. IBUPROFEN [Concomitant]
     Active Substance: IBUPROFEN
     Indication: Coccydynia
  22. IBUPROFEN [Concomitant]
     Active Substance: IBUPROFEN
     Indication: Breakthrough pain
  23. IBUPROFEN [Concomitant]
     Active Substance: IBUPROFEN
     Indication: Pain

REACTIONS (3)
  - Urinary retention [Recovered/Resolved]
  - Therapy partial responder [Unknown]
  - Inadequate analgesia [Recovered/Resolved]
